FAERS Safety Report 7364538-X (Version None)
Quarter: 2011Q1

REPORT INFORMATION
  Report Type: 
  Country: None (occurrence: None)
  Receive Date: 20110321
  Receipt Date: 20110310
  Transmission Date: 20110831
  Serious: Yes (Hospitalization)
  Sender: FDA-Public Use
  Company Number: DE-ASTRAZENECA-2011SE13693

PATIENT
  Age: 12 Year
  Sex: Male

DRUGS (1)
  1. ANTRA MUPS [Suspect]
     Indication: REFLUX OESOPHAGITIS
     Route: 048
     Dates: start: 20050101

REACTIONS (3)
  - OSTEITIS [None]
  - DIZZINESS [None]
  - HEADACHE [None]
